FAERS Safety Report 7546942-X (Version None)
Quarter: 2011Q2

REPORT INFORMATION
  Report Type: 
  Country: None (occurrence: None)
  Receive Date: 20110607
  Receipt Date: 20110523
  Transmission Date: 20111010
  Serious: Yes (Death, Hospitalization)
  Sender: FDA-Public Use
  Company Number: 2011-1122

PATIENT
  Age: 80 Year
  Sex: Female

DRUGS (4)
  1. MADOPAR (MADOPAR /00349201/) [Concomitant]
  2. SIMVASTATIN [Concomitant]
  3. CLOZAPINE [Concomitant]
  4. APO-GO AMPOULES (APO-GO) (APOMORPHINE HYDROCHLORIDE) (APOMORPHINE HYDR [Suspect]
     Indication: PARKINSON'S DISEASE
     Dosage: 80MG (80 MG, 1 IN 1 D),
     Dates: start: 20050101, end: 20110425

REACTIONS (3)
  - PNEUMONIA [None]
  - REFUSAL OF TREATMENT BY PATIENT [None]
  - CARDIOPULMONARY FAILURE [None]
